FAERS Safety Report 13987377 (Version 2)
Quarter: 2017Q4

REPORT INFORMATION
  Report Type: Spontaneous
  Country: US (occurrence: US)
  Receive Date: 20170919
  Receipt Date: 20171004
  Transmission Date: 20180321
  Serious: Yes (Other)
  Sender: FDA-Public Use
  Company Number: US-AKORN PHARMACEUTICALS-2017AKN01120

PATIENT
  Sex: Female

DRUGS (1)
  1. MYORISAN [Suspect]
     Active Substance: ISOTRETINOIN
     Indication: ACNE
     Dosage: 40 MG, 1X/DAY WITH FOOD
     Route: 048
     Dates: start: 20170626, end: 20170908

REACTIONS (2)
  - Depression [Unknown]
  - Headache [Unknown]

NARRATIVE: CASE EVENT DATE: 2017
